FAERS Safety Report 8070593-4 (Version None)
Quarter: 2012Q1

REPORT INFORMATION
  Report Type: 
  Country: None (occurrence: None)
  Receive Date: 20120125
  Receipt Date: 20120118
  Transmission Date: 20120608
  Serious: Yes (Other)
  Sender: FDA-Public Use
  Company Number: PHEH2012US001679

PATIENT
  Age: 60 Year
  Sex: Male

DRUGS (8)
  1. ZOMETA [Suspect]
     Dates: start: 20110201
  2. ZOMETA [Suspect]
     Dosage: UNK UKN, UNK
     Dates: start: 20110301
  3. ZANTAC [Concomitant]
     Dosage: 150 MG, QD
  4. ACCUPRIL [Concomitant]
     Dosage: 40 MG, UNK
  5. METFORMIN HYDROCHLORIDE [Concomitant]
     Dosage: 150 MG, QD
  6. LIPITOR [Concomitant]
     Dosage: 40 MG, QD
  7. SYNTHROID [Concomitant]
     Dosage: 125 UG, QD
  8. LUPRON [Concomitant]
     Dosage: 30 MG, Q3MO

REACTIONS (1)
  - PROSTATIC SPECIFIC ANTIGEN INCREASED [None]
